FAERS Safety Report 15587440 (Version 1)
Quarter: 2018Q4

REPORT INFORMATION
  Report Type: Spontaneous
  Country: US (occurrence: US)
  Receive Date: 20181105
  Receipt Date: 20181105
  Transmission Date: 20190205
  Serious: Yes (Other)
  Sender: FDA-Public Use
  Company Number: US-GLAXOSMITHKLINE-US2018GSK194942

PATIENT

DRUGS (3)
  1. TANZEUM [Suspect]
     Active Substance: ALBIGLUTIDE
     Indication: PRODUCT USED FOR UNKNOWN INDICATION
     Route: 065
  2. GLIPIZIDE. [Suspect]
     Active Substance: GLIPIZIDE
  3. INSULIN [Suspect]
     Active Substance: INSULIN NOS

REACTIONS (4)
  - Renal impairment [Unknown]
  - Blood glucose decreased [Unknown]
  - Weight decreased [Unknown]
  - Blood glucose increased [Unknown]
